FAERS Safety Report 8435999-X (Version None)
Quarter: 2012Q2

REPORT INFORMATION
  Report Type: 
  Country: None (occurrence: None)
  Receive Date: 20120607
  Receipt Date: 20120607
  Transmission Date: 20120825
  Serious: Yes (Other)
  Sender: FDA-Public Use
  Company Number: None

PATIENT
  Age: 23 Year
  Sex: Male
  Weight: 54.4316 kg

DRUGS (2)
  1. PROLIXIN [Suspect]
     Dosage: 15MG EVERY 2 WEEKS IM
     Route: 030
     Dates: start: 20120424, end: 20120515
  2. PROLIXIN [Suspect]
     Dosage: 15MG EVERY 2 WEEKS IM
     Route: 030
     Dates: start: 20120529, end: 20120612

REACTIONS (2)
  - DEPRESSION [None]
  - SUICIDAL IDEATION [None]
